FAERS Safety Report 4870140-1 (Version None)
Quarter: 2005Q4

REPORT INFORMATION
  Report Type: 
  Country: None (occurrence: None)
  Receive Date: 20051228
  Receipt Date: 20051216
  Transmission Date: 20060501
  Serious: Yes (Hospitalization)
  Sender: FDA-Public Use
  Company Number: A044-002-005877

PATIENT
  Age: 82 Year
  Sex: Female

DRUGS (9)
  1. ARICEPT [Suspect]
     Indication: DEMENTIA
     Dosage: 5 MG, 1 IN 1 D, ORAL; 10 MG, 1 IN 1 D, ORAL
     Route: 048
     Dates: end: 20051121
  2. ARICEPT [Suspect]
     Indication: DEMENTIA
     Dosage: 5 MG, 1 IN 1 D, ORAL; 10 MG, 1 IN 1 D, ORAL
     Route: 048
     Dates: start: 20051122, end: 20051220
  3. SULPIRIDE (SULPIRIDE) [Concomitant]
  4. TORSEMIDE [Concomitant]
  5. IBUPROFEN [Concomitant]
  6. RAMIPRIL [Concomitant]
  7. LANITOP (METILDIGOXIN) [Concomitant]
  8. FOLIC ACID [Concomitant]
  9. VITAMIN B12 [Concomitant]

REACTIONS (1)
  - HYPERSENSITIVITY [None]
